FAERS Safety Report 10081789 (Version 5)
Quarter: 2014Q3

REPORT INFORMATION
  Report Type: Spontaneous
  Country: JP (occurrence: None)
  Receive Date: 20140414
  Receipt Date: 20140714
  Transmission Date: 20150326
  Serious: Yes (Hospitalization, Other)
  Sender: FDA-Public Use
  Company Number: ADR-2014-00581

PATIENT
  Age: 55 Year
  Sex: Female
  Weight: 86 kg

DRUGS (2)
  1. GABALON [Suspect]
     Active Substance: BACLOFEN
     Indication: CEREBRAL PALSY
     Dosage: SEE B5
     Dates: start: 20100317, end: 20140326
  2. ORAL DEPAS [Suspect]
     Active Substance: ETIZOLAM

REACTIONS (23)
  - Social problem [None]
  - Device related infection [None]
  - Drug withdrawal syndrome [None]
  - Muscle spasticity [None]
  - Pruritus [None]
  - VIIth nerve paralysis [None]
  - Implant site infection [None]
  - Incorrect dose administered [None]
  - Condition aggravated [None]
  - Wound complication [None]
  - Musculoskeletal stiffness [None]
  - Paraesthesia [None]
  - Device extrusion [None]
  - Device connection issue [None]
  - Pyrexia [None]
  - Drug tolerance [None]
  - Wound dehiscence [None]
  - Decubitus ulcer [None]
  - Nervous system disorder [None]
  - Feeling hot [None]
  - Device breakage [None]
  - Wound infection staphylococcal [None]
  - Medical device complication [None]
